FAERS Safety Report 6062628-5 (Version None)
Quarter: 2009Q1

REPORT INFORMATION
  Report Type: 
  Country: None (occurrence: None)
  Receive Date: 20090203
  Receipt Date: 20090127
  Transmission Date: 20090719
  Serious: Yes (Other)
  Sender: FDA-Public Use
  Company Number: US-PFIZER INC-2009163269

PATIENT
  Sex: Male

DRUGS (1)
  1. XALATAN [Suspect]

REACTIONS (1)
  - RENAL TRANSPLANT [None]
